FAERS Safety Report 6782424-0 (Version None)
Quarter: 2010Q2

REPORT INFORMATION
  Report Type: 
  Country: None (occurrence: None)
  Receive Date: 20100616
  Receipt Date: 20100604
  Transmission Date: 20101027
  Serious: Yes (Other)
  Sender: FDA-Public Use
  Company Number: 7007096

PATIENT
  Age: 56 Year
  Sex: Male

DRUGS (4)
  1. REBIF [Suspect]
     Indication: MULTIPLE SCLEROSIS
     Dosage: 44 MCG, 3 IN 1 WK, SUBCUTANEOUS
     Route: 058
     Dates: start: 20061207
  2. CALCIUM SUPPLEMENTS (CALCIUM) [Concomitant]
  3. VITAMIN D [Concomitant]
  4. HIGH CALCIUM USER DRUGS (ALL OTHER THERAPEUTIC PRODUCTS) [Concomitant]

REACTIONS (5)
  - FALL [None]
  - MULTIPLE FRACTURES [None]
  - MULTIPLE SCLEROSIS RELAPSE [None]
  - PELVIC FRACTURE [None]
  - SPINAL FRACTURE [None]
